FAERS Safety Report 7085089-6 (Version None)
Quarter: 2010Q4

REPORT INFORMATION
  Report Type: 
  Country: None (occurrence: None)
  Receive Date: 20101105
  Receipt Date: 20101026
  Transmission Date: 20110411
  Serious: Yes (Other)
  Sender: FDA-Public Use
  Company Number: US-JNJFOC-20100700650

PATIENT
  Sex: Female
  Weight: 94.8 kg

DRUGS (3)
  1. REMICADE [Suspect]
     Indication: PSORIATIC ARTHROPATHY
     Route: 042
  2. METFORMIN [Concomitant]
     Indication: DIABETES MELLITUS
  3. ALTACE [Concomitant]
     Indication: HYPERTENSION

REACTIONS (3)
  - LUNG NEOPLASM [None]
  - PSORIASIS [None]
  - PYREXIA [None]
